FAERS Safety Report 7224171-7 (Version None)
Quarter: 2011Q1

REPORT INFORMATION
  Report Type: 
  Country: None (occurrence: None)
  Receive Date: 20110106
  Receipt Date: 20110106
  Transmission Date: 20110831
  Serious: Yes (Life-Threatening, Hospitalization)
  Sender: FDA-Public Use
  Company Number: None

PATIENT
  Age: 76 Year
  Sex: Female

DRUGS (1)
  1. DRONEDARONE HCL [Suspect]

REACTIONS (4)
  - HYPOXIA [None]
  - PYREXIA [None]
  - PULMONARY TOXICITY [None]
  - LUNG INFILTRATION [None]
